FAERS Safety Report 7485797-9 (Version None)
Quarter: 2011Q2

REPORT INFORMATION
  Report Type: 
  Country: None (occurrence: None)
  Receive Date: 20110517
  Receipt Date: 20110512
  Transmission Date: 20111010
  Serious: Yes (Hospitalization)
  Sender: FDA-Public Use
  Company Number: US-ABBOTT-11P-163-0725567-00

PATIENT
  Sex: Male

DRUGS (7)
  1. PREDNISONE TAB [Concomitant]
     Indication: CROHN'S DISEASE
  2. PAXIL [Concomitant]
     Indication: DEPRESSION
  3. IMODIUM [Concomitant]
     Indication: DIARRHOEA
  4. HUMIRA [Suspect]
     Dates: start: 20110512
  5. HUMIRA [Suspect]
     Indication: CROHN'S DISEASE
     Dates: start: 20110331, end: 20110415
  6. IMURAN [Concomitant]
     Indication: CROHN'S DISEASE
  7. OXYCODONE HCL [Concomitant]
     Indication: PAIN

REACTIONS (2)
  - INTESTINAL OBSTRUCTION [None]
  - ADHESION [None]
